FAERS Safety Report 12391166 (Version 1)
Quarter: 2016Q2

REPORT INFORMATION
  Report Type: Spontaneous
  Country: US (occurrence: US)
  Receive Date: 20160520
  Receipt Date: 20160520
  Transmission Date: 20160815
  Serious: Yes (Other)
  Sender: FDA-Public Use
  Company Number: US-MDT-ADR-2016-00039

PATIENT
  Age: 51 Year
  Sex: Female

DRUGS (4)
  1. BACLOFEN. [Suspect]
     Active Substance: BACLOFEN
     Dosage: 26.64MCG/DAY
     Route: 037
  2. TECFIDERA [Suspect]
     Active Substance: DIMETHYL FUMARATE
  3. PROZAC [Suspect]
     Active Substance: FLUOXETINE HYDROCHLORIDE
  4. CARDURA [Suspect]
     Active Substance: DOXAZOSIN MESYLATE

REACTIONS (2)
  - Asthenia [Unknown]
  - Cystitis [Recovered/Resolved]

NARRATIVE: CASE EVENT DATE: 201511
